FAERS Safety Report 13388071 (Version 5)
Quarter: 2017Q3

REPORT INFORMATION
  Report Type: Report from Study
  Country: CA (occurrence: CA)
  Receive Date: 20170330
  Receipt Date: 20170703
  Transmission Date: 20171127
  Serious: Yes (Life-Threatening, Hospitalization, Other)
  Sender: FDA-Public Use
  Company Number: CA-GILEAD-2017-0265260

PATIENT
  Age: 37 Year
  Sex: Male
  Weight: 79.3 kg

DRUGS (17)
  1. ACETAMINOPHEN. [Concomitant]
     Active Substance: ACETAMINOPHEN
     Dosage: 500 MG, QD PRN
     Route: 048
     Dates: start: 20170208
  2. KADIAN [Concomitant]
     Active Substance: MORPHINE SULFATE
     Indication: PAIN
     Dosage: 100 MG, QD PRN
     Route: 048
     Dates: start: 20170125
  3. RANITIDINE. [Concomitant]
     Active Substance: RANITIDINE
     Indication: GASTROOESOPHAGEAL REFLUX DISEASE
     Dosage: 150 MG, BID
     Route: 048
     Dates: start: 20170208
  4. RITUXIMAB. [Concomitant]
     Active Substance: RITUXIMAB
     Indication: LYMPHOMA
     Dosage: UNK UNK, QD
     Route: 042
     Dates: start: 20161213
  5. NORTRIPTYLINE [Concomitant]
     Active Substance: NORTRIPTYLINE
     Dosage: 10 MG, QHS
     Route: 048
     Dates: start: 20170301
  6. ZOPICLONE [Concomitant]
     Active Substance: ZOPICLONE
     Dosage: 15 MG, QHS
     Route: 048
     Dates: start: 20160923
  7. LORATADINE. [Concomitant]
     Active Substance: LORATADINE
     Indication: HYPERSENSITIVITY
     Dosage: 10 MG, QD
     Route: 048
     Dates: start: 20170208
  8. ENSURE [Concomitant]
     Active Substance: AMINO ACIDS\DEXTROSE\ELECTROLYTES NOS\SOYBEAN OIL\VITAMINS
     Dosage: 1, TID
     Route: 065
     Dates: start: 20170201
  9. SOFOSBUVIR W/VELPATASVIR [Suspect]
     Active Substance: SOFOSBUVIR\VELPATASVIR
     Indication: CHRONIC HEPATITIS C
     Dosage: 1 UNK, UNK
     Route: 048
     Dates: start: 20170113
  10. GRANISETRON [Concomitant]
     Active Substance: GRANISETRON
     Indication: NAUSEA
     Dosage: 2 MG, QD
     Route: 048
     Dates: start: 20170208
  11. BENDAMUSTINE [Concomitant]
     Active Substance: BENDAMUSTINE
     Indication: LYMPHOMA
     Dosage: 25 MG, QD
     Route: 042
     Dates: start: 20161213
  12. MORPHINE [Concomitant]
     Active Substance: MORPHINE
     Dosage: 60 MG, QD
     Route: 048
  13. CLONAZEPAM. [Concomitant]
     Active Substance: CLONAZEPAM
     Indication: ANXIETY
     Dosage: 1 MG, TID PRN
     Route: 048
     Dates: start: 20161017
  14. NALOXONE HCL [Concomitant]
     Active Substance: NALOXONE HYDROCHLORIDE
     Dosage: 0.4 MG/ML QD
     Route: 065
     Dates: start: 20170125
  15. QUETIAPINE. [Concomitant]
     Active Substance: QUETIAPINE
     Indication: SOMNOLENCE
     Dosage: 1 TO 2 TABLETS, QHS PRN
     Route: 048
     Dates: start: 20170120
  16. ANODAN-HC [Concomitant]
     Dosage: UNK, TID PRN 1 REC
     Route: 061
     Dates: start: 20160912
  17. BACTROBAN [Concomitant]
     Active Substance: MUPIROCIN\MUPIROCIN CALCIUM
     Dosage: 1 TID, TOP
     Route: 061
     Dates: start: 20161128

REACTIONS (3)
  - Hypotension [Recovered/Resolved]
  - Febrile neutropenia [Recovered/Resolved]
  - Sepsis [Recovered/Resolved]

NARRATIVE: CASE EVENT DATE: 20170321
